FAERS Safety Report 22863710 (Version 2)
Quarter: 2024Q4

REPORT INFORMATION
  Report Type: Report from Study
  Country: US (occurrence: US)
  Receive Date: 20230825
  Receipt Date: 20241127
  Transmission Date: 20250114
  Serious: Yes (Hospitalization, Other)
  Sender: ROCHE
  Company Number: US-ROCHE-2982507

PATIENT
  Age: 64 Year
  Sex: Female

DRUGS (7)
  1. OCREVUS [Suspect]
     Active Substance: OCRELIZUMAB
     Indication: Multiple sclerosis
     Dosage: (300MG/10ML EVERY 6 MONTHS) THEN 600 MG EVERY 6 MONTHS; DATE OF TREATMENT:  27-JAN-2021, 30-JUN-2021
     Route: 042
     Dates: start: 20210113
  2. OCREVUS [Suspect]
     Active Substance: OCRELIZUMAB
     Indication: Relapsing multiple sclerosis
     Route: 042
  3. OXYCODONE AND ACETAMINOPHEN [Concomitant]
     Active Substance: ACETAMINOPHEN\OXYCODONE HYDROCHLORIDE
     Route: 048
  4. ZOLPIDEM TARTRATE [Concomitant]
     Active Substance: ZOLPIDEM TARTRATE
     Route: 048
  5. TRILEPTAL [Concomitant]
     Active Substance: OXCARBAZEPINE
     Route: 048
  6. GABAPENTIN [Concomitant]
     Active Substance: GABAPENTIN
     Route: 048
  7. ALENDRONATE SODIUM [Concomitant]
     Active Substance: ALENDRONATE SODIUM

REACTIONS (17)
  - Off label use [Unknown]
  - COVID-19 pneumonia [Unknown]
  - Drug ineffective [Unknown]
  - Urinary tract infection [Unknown]
  - Sepsis [Unknown]
  - Dementia [Unknown]
  - Somnolence [Unknown]
  - Myalgia [Unknown]
  - Lymphocyte count decreased [Unknown]
  - Sciatica [Unknown]
  - Respiratory depression [Unknown]
  - Confusional state [Unknown]
  - Hallucination [Unknown]
  - Dry mouth [Unknown]
  - Delusion [Unknown]
  - Micturition urgency [Unknown]
  - Grief reaction [Unknown]
